FAERS Safety Report 15549038 (Version 1)
Quarter: 2018Q4

REPORT INFORMATION
  Report Type: Spontaneous
  Country: US (occurrence: US)
  Receive Date: 20181025
  Receipt Date: 20181025
  Transmission Date: 20190205
  Serious: Yes (Other)
  Sender: FDA-Public Use
  Company Number: US-BEH-2018096035

PATIENT
  Age: 46 Year
  Sex: Female
  Weight: 77.98 kg

DRUGS (18)
  1. HAEGARDA [Suspect]
     Active Substance: HUMAN C1-ESTERASE INHIBITOR
     Indication: HEREDITARY ANGIOEDEMA
     Dosage: 4000 IU, BIW
     Route: 058
     Dates: start: 20180705
  2. RUCONEST [Concomitant]
     Active Substance: HUMAN C1-ESTERASE INHIBITOR
  3. STERILE WATER [Concomitant]
     Active Substance: WATER
  4. FIRAZYR [Concomitant]
     Active Substance: ICATIBANT ACETATE
  5. EPIPEN [Concomitant]
     Active Substance: EPINEPHRINE
  6. ROPINIROLE. [Concomitant]
     Active Substance: ROPINIROLE
  7. PLAQUENIL                          /00072602/ [Concomitant]
     Active Substance: HYDROXYCHLOROQUINE DIPHOSPHATE
  8. DIFLUCAN [Concomitant]
     Active Substance: FLUCONAZOLE
  9. DOXEPIN [Concomitant]
     Active Substance: DOXEPIN
  10. HAEGARDA [Suspect]
     Active Substance: HUMAN C1-ESTERASE INHIBITOR
     Indication: PROPHYLAXIS
  11. HEPARIN [Concomitant]
     Active Substance: HEPARIN SODIUM
  12. CLONAZEPAM. [Concomitant]
     Active Substance: CLONAZEPAM
  13. PREDNISONE. [Concomitant]
     Active Substance: PREDNISONE
  14. SODIUM CHLORIDE. [Concomitant]
     Active Substance: SODIUM CHLORIDE
  15. CINRYZE [Concomitant]
     Active Substance: HUMAN C1-ESTERASE INHIBITOR
  16. EPINEPHRINE. [Concomitant]
     Active Substance: EPINEPHRINE
  17. BERINERT [Concomitant]
     Active Substance: HUMAN C1-ESTERASE INHIBITOR
  18. CYMBALTA [Concomitant]
     Active Substance: DULOXETINE HYDROCHLORIDE

REACTIONS (1)
  - Kidney infection [Unknown]

NARRATIVE: CASE EVENT DATE: 20181012
